FAERS Safety Report 7608108-4 (Version None)
Quarter: 2011Q3

REPORT INFORMATION
  Report Type: 
  Country: None (occurrence: None)
  Receive Date: 20110714
  Receipt Date: 20110701
  Transmission Date: 20111222
  Serious: Yes (Other)
  Sender: FDA-Public Use
  Company Number: US-RANBAXY-2011US-45879

PATIENT
  Sex: Male

DRUGS (3)
  1. ISOTRETINOIN [Suspect]
     Indication: ICHTHYOSIS
     Dosage: 15 MG, QD (0.66 MG/KG)
     Route: 048
  2. ISOTRETINOIN [Suspect]
     Dosage: 10 MG, QD (0.37 MG/KG)
     Route: 065
  3. ISOTRETINOIN [Suspect]
     Dosage: 30 MG, QD
     Route: 048

REACTIONS (2)
  - EXOSTOSIS [None]
  - OFF LABEL USE [None]
